FAERS Safety Report 14342993 (Version 2)
Quarter: 2018Q1

REPORT INFORMATION
  Report Type: Spontaneous
  Country: None (occurrence: FR)
  Receive Date: 20180102
  Receipt Date: 20180227
  Transmission Date: 20180509
  Serious: Yes (Hospitalization)
  Sender: FDA-Public Use
  Company Number: FR-FRESENIUS KABI-FK201711555

PATIENT
  Age: 83 Year
  Sex: Male
  Weight: 103 kg

DRUGS (7)
  1. OFLOXACINE [Suspect]
     Active Substance: OFLOXACIN
     Indication: OSTEITIS
     Route: 048
     Dates: start: 20171205, end: 20171213
  2. AXEPIM 2 G, POUDRE POUR USAGE PARENTERAL [Suspect]
     Active Substance: CEFEPIME HYDROCHLORIDE
     Indication: OSTEITIS
     Route: 065
     Dates: start: 20171201, end: 20171205
  3. AMLODIPINE [Concomitant]
     Active Substance: AMLODIPINE BESYLATE
     Indication: PRODUCT USED FOR UNKNOWN INDICATION
     Route: 048
  4. CALCIPARINE [Concomitant]
     Active Substance: HEPARIN CALCIUM
     Indication: PRODUCT USED FOR UNKNOWN INDICATION
     Route: 065
  5. CEFOXITIN [Suspect]
     Active Substance: CEFOXITIN SODIUM
     Indication: OSTEITIS
     Route: 042
     Dates: start: 20171205, end: 20171213
  6. VANCOMYCIN (MANUFACTURER UNKNOWN) [Suspect]
     Active Substance: VANCOMYCIN
     Indication: OSTEITIS
     Route: 042
     Dates: start: 20171202, end: 20171205
  7. FUROSEMIDE. [Suspect]
     Active Substance: FUROSEMIDE
     Indication: PRODUCT USED FOR UNKNOWN INDICATION
     Route: 048
     Dates: start: 20160301

REACTIONS (1)
  - Acute kidney injury [Recovering/Resolving]

NARRATIVE: CASE EVENT DATE: 20171207
